FAERS Safety Report 21990742 (Version 3)
Quarter: 2023Q2

REPORT INFORMATION
  Report Type: Spontaneous
  Country: DE (occurrence: None)
  Receive Date: 20230214
  Receipt Date: 20230412
  Transmission Date: 20230722
  Serious: Yes (Life-Threatening, Hospitalization, Other)
  Sender: FDA-Public Use
  Company Number: 2023A036792

PATIENT
  Age: 25588 Day
  Sex: Male

DRUGS (3)
  1. CALQUENCE [Suspect]
     Active Substance: ACALABRUTINIB
     Indication: Chronic lymphocytic leukaemia
     Dosage: 100.0MG UNKNOWN
     Route: 048
     Dates: start: 20220503
  2. CALQUENCE [Suspect]
     Active Substance: ACALABRUTINIB
     Indication: Chronic lymphocytic leukaemia
     Dosage: 200.0MG UNKNOWN
     Route: 048
     Dates: start: 20220518, end: 20221120
  3. ELIQUIS [Concomitant]
     Active Substance: APIXABAN

REACTIONS (5)
  - Renal haematoma [Unknown]
  - Renal haemorrhage [Unknown]
  - Atrial fibrillation [Recovering/Resolving]
  - Abdominal discomfort [Unknown]
  - Haematotympanum [Unknown]

NARRATIVE: CASE EVENT DATE: 20221120
